FAERS Safety Report 8171809-6 (Version None)
Quarter: 2012Q1

REPORT INFORMATION
  Report Type: 
  Country: None (occurrence: None)
  Receive Date: 20120228
  Receipt Date: 20120220
  Transmission Date: 20120608
  Serious: Yes (Hospitalization)
  Sender: FDA-Public Use
  Company Number: FR-GLAXOSMITHKLINE-B0782594A

PATIENT
  Sex: Male

DRUGS (3)
  1. ARTESUNATE [Suspect]
     Indication: MALARIA
     Dosage: 180MG PER DAY
     Route: 042
     Dates: start: 20111214, end: 20111215
  2. ARTESUNATE [Suspect]
     Dosage: 180MG PER DAY
     Route: 048
     Dates: start: 20111215, end: 20111216
  3. MALARONE [Suspect]
     Indication: MALARIA
     Dosage: 4TAB PER DAY
     Route: 048
     Dates: start: 20111217, end: 20111219

REACTIONS (1)
  - HAEMOLYTIC ANAEMIA [None]
